FAERS Safety Report 10473866 (Version 2)
Quarter: 2014Q3

REPORT INFORMATION
  Report Type: Spontaneous
  Country: JP (occurrence: JP)
  Receive Date: 20140924
  Receipt Date: 20140924
  Transmission Date: 20150326
  Serious: Yes (Other)
  Sender: FDA-Public Use
  Company Number: JP-ASTRAZENECA-2014SE70112

PATIENT
  Age: 37 Year
  Sex: Female

DRUGS (13)
  1. KENACORT [Concomitant]
     Active Substance: TRIAMCINOLONE
  2. OMEPRAL [Suspect]
     Active Substance: OMEPRAZOLE
     Route: 048
  3. UNIPHYL LA [Concomitant]
     Active Substance: THEOPHYLLINE
  4. CLEANAL [Concomitant]
     Active Substance: FUDOSTEINE
  5. LOXONIN [Concomitant]
     Active Substance: LOXOPROFEN SODIUM
  6. DEPAS [Concomitant]
     Active Substance: ETIZOLAM
  7. JZOLOFT [Suspect]
     Active Substance: SERTRALINE HYDROCHLORIDE
     Indication: STRESS
     Route: 065
     Dates: start: 20140714, end: 20140714
  8. JZOLOFT [Suspect]
     Active Substance: SERTRALINE HYDROCHLORIDE
     Indication: DEPRESSION
     Route: 065
     Dates: start: 20140714, end: 20140714
  9. SINGULAIR [Concomitant]
     Active Substance: MONTELUKAST SODIUM
  10. MUCOSOLVAN L [Concomitant]
     Active Substance: AMBROXOL HYDROCHLORIDE
  11. JZOLOFT [Suspect]
     Active Substance: SERTRALINE HYDROCHLORIDE
     Indication: INSOMNIA
     Route: 065
     Dates: start: 20140714, end: 20140714
  12. SILECE [Concomitant]
     Active Substance: FLUNITRAZEPAM
  13. FLUTIFORM [Concomitant]
     Active Substance: FLUTICASONE PROPIONATE\FORMOTEROL FUMARATE

REACTIONS (4)
  - Panic reaction [Unknown]
  - Tachycardia [Recovered/Resolved]
  - Blood pressure increased [Recovered/Resolved]
  - Palpitations [Unknown]

NARRATIVE: CASE EVENT DATE: 20140714
